FAERS Safety Report 8079710 (Version 2)
Quarter: 2014Q3

REPORT INFORMATION
  Report Type: Report from Study
  Country: FR (occurrence: FR)
  Receive Date: 20110808
  Receipt Date: 20140909
  Transmission Date: 20150326
  Serious: Yes (Other)
  Sender: FDA-Public Use
  Company Number: FR-PFIZER INC-2011171864

PATIENT
  Age: 59 Year
  Sex: Male

DRUGS (6)
  1. ARACYTINE [Suspect]
     Active Substance: CYTARABINE
     Indication: ACUTE MYELOID LEUKAEMIA
     Dosage: 400 MG, 1X/DAY
     Route: 042
     Dates: start: 20081114, end: 20081117
  2. CERUBIDINE [Suspect]
     Active Substance: DAUNORUBICIN HYDROCHLORIDE
     Indication: ACUTE LEUKAEMIA
     Dosage: 70 MG, 1X/DAY
     Route: 042
     Dates: start: 20081114, end: 20081116
  3. CIFLOX [Suspect]
     Active Substance: CIPROFLOXACIN
     Indication: PYREXIA
  4. GENTAMICIN [Concomitant]
     Active Substance: GENTAMICIN
     Indication: PYREXIA
  5. MYLOTARG [Suspect]
     Active Substance: GEMTUZUMAB OZOGAMICIN
     Indication: ACUTE LEUKAEMIA
     Dosage: 12 MG, 1X/DAY
     Route: 042
     Dates: start: 20081117, end: 20081117
  6. ROCEPHINE [Concomitant]
     Active Substance: CEFTRIAXONE SODIUM
     Indication: PYREXIA
     Route: 042

REACTIONS (2)
  - Pyrexia [Recovered/Resolved]
  - Status epilepticus [Recovered/Resolved]

NARRATIVE: CASE EVENT DATE: 2008
